FAERS Safety Report 5346929-1 (Version None)
Quarter: 2007Q2

REPORT INFORMATION
  Report Type: 
  Country: None (occurrence: None)
  Receive Date: 20070430
  Receipt Date: 20070116
  Transmission Date: 20071010
  Serious: No
  Sender: FDA-Public Use
  Company Number: 260062

PATIENT
  Age: 69 Year
  Sex: Female

DRUGS (1)
  1. LEVEMIR [Suspect]
     Indication: DIABETES MELLITUS
     Dosage: 24 IU, PRN, SUBCUTANEOUS
     Route: 058
     Dates: start: 20061001

REACTIONS (1)
  - BLOOD GLUCOSE INCREASED [None]
